FAERS Safety Report 7206762-2 (Version None)
Quarter: 2011Q1

REPORT INFORMATION
  Report Type: 
  Country: None (occurrence: None)
  Receive Date: 20110103
  Receipt Date: 20101224
  Transmission Date: 20110831
  Serious: Yes (Other)
  Sender: FDA-Public Use
  Company Number: AU-SANOFI-AVENTIS-2010SA077730

PATIENT
  Age: 67 Year
  Sex: Female

DRUGS (11)
  1. FOLIC ACID [Concomitant]
  2. PREDNISONE [Concomitant]
     Route: 065
  3. ALL OTHER THERAPEUTIC PRODUCTS [Concomitant]
     Route: 065
  4. WARFARIN SODIUM [Concomitant]
  5. ARAVA [Suspect]
     Route: 048
     Dates: start: 20090308
  6. KARVEZIDE [Concomitant]
  7. CALCIUM [Concomitant]
     Route: 065
  8. SOMAC [Concomitant]
     Route: 065
  9. FISH OIL [Concomitant]
     Route: 065
  10. METHOTREXATE [Concomitant]
     Route: 065
  11. CLEXANE [Concomitant]

REACTIONS (3)
  - PULMONARY EMBOLISM [None]
  - CHEST PAIN [None]
  - DYSPNOEA [None]
